APPROVED DRUG PRODUCT: CEVIMELINE HYDROCHLORIDE
Active Ingredient: CEVIMELINE HYDROCHLORIDE
Strength: 30MG
Dosage Form/Route: CAPSULE;ORAL
Application: A203775 | Product #001 | TE Code: AB
Applicant: RISING PHARMA HOLDINGS INC
Approved: Jun 4, 2014 | RLD: No | RS: No | Type: RX